FAERS Safety Report 11134515 (Version 1)
Quarter: 2015Q2

REPORT INFORMATION
  Report Type: Spontaneous
  Country: US (occurrence: US)
  Receive Date: 20150525
  Receipt Date: 20150525
  Transmission Date: 20150821
  Serious: No
  Sender: FDA-Public Use
  Company Number: US-ASTRAZENECA-2015SE44787

PATIENT
  Age: 73 Year
  Sex: Female

DRUGS (3)
  1. CHOLESTEROL- AND TRIGLYCERIDE REDUCERS [Concomitant]
     Active Substance: UNSPECIFIED INGREDIENT
  2. PRILOSEC OTC [Suspect]
     Active Substance: OMEPRAZOLE MAGNESIUM
     Route: 048
     Dates: start: 20150506, end: 20150510
  3. GLAUCOMA EYE DROPS [Concomitant]

REACTIONS (2)
  - Migraine with aura [Recovered/Resolved]
  - Feeling abnormal [Recovered/Resolved]
